FAERS Safety Report 4341559-2 (Version None)
Quarter: 2004Q2

REPORT INFORMATION
  Report Type: 
  Country: None (occurrence: None)
  Receive Date: 20040420
  Receipt Date: 20040414
  Transmission Date: 20050107
  Serious: Yes (Death)
  Sender: FDA-Public Use
  Company Number: US-JNJFOC-20040301432

PATIENT
  Sex: Female
  Weight: 91.17 kg

DRUGS (6)
  1. DURAGESIC [Suspect]
     Indication: DRUG USE FOR UNKNOWN INDICATION
     Dosage: TWO 75 UG/HR PATCHES (WITH BIOCCLUSIVE DRESSING)
     Route: 062
     Dates: start: 20040211
  2. DIAZEPAM [Suspect]
     Indication: DRUG USE FOR UNKNOWN INDICATION
  3. OXYCODONE [Suspect]
     Indication: DRUG USE FOR UNKNOWN INDICATION
  4. MORPHINE [Suspect]
     Indication: DRUG USE FOR UNKNOWN INDICATION
  5. GABAPENTIN [Suspect]
     Indication: DRUG USE FOR UNKNOWN INDICATION
  6. BENADRYL [Concomitant]
     Indication: DRUG USE FOR UNKNOWN INDICATION

REACTIONS (12)
  - CARDIOMEGALY [None]
  - CARDIOPULMONARY FAILURE [None]
  - DRUG ABUSER [None]
  - DRUG TOXICITY [None]
  - HEPATIC CONGESTION [None]
  - MUCOUS MEMBRANE DISORDER [None]
  - NERVOUS SYSTEM DISORDER [None]
  - OESOPHAGITIS [None]
  - PHARMACEUTICAL PRODUCT COMPLAINT [None]
  - PULMONARY CONGESTION [None]
  - PULMONARY OEDEMA [None]
  - SCOLIOSIS [None]
